FAERS Safety Report 10405881 (Version 1)
Quarter: 2014Q3

REPORT INFORMATION
  Report Type: Spontaneous
  Country: US (occurrence: None)
  Receive Date: 20140821
  Receipt Date: 20140821
  Transmission Date: 20150326
  Serious: Yes (Other)
  Sender: FDA-Public Use
  Company Number: BR14-308-AE

PATIENT
  Age: 65 Year
  Sex: Female
  Weight: 79.38 kg

DRUGS (4)
  1. PRILOSEC [Concomitant]
     Active Substance: OMEPRAZOLE MAGNESIUM
  2. LITHIUM [Concomitant]
     Active Substance: LITHIUM CARBONATE
  3. BENZONATATE. [Suspect]
     Active Substance: BENZONATATE
     Indication: COUGH
     Dosage: 1 CAP THRICE DAILY, ORAL
     Route: 048
     Dates: start: 20140806, end: 20140807
  4. SEROQUEL [Concomitant]
     Active Substance: QUETIAPINE FUMARATE

REACTIONS (9)
  - Convulsion [None]
  - Dyspnoea [None]
  - Back pain [None]
  - Vomiting [None]
  - Chest pain [None]
  - Chills [None]
  - Musculoskeletal disorder [None]
  - Chest discomfort [None]
  - Cough [None]

NARRATIVE: CASE EVENT DATE: 20140806
